FAERS Safety Report 5062668-9 (Version None)
Quarter: 2006Q3

REPORT INFORMATION
  Report Type: 
  Country: None (occurrence: None)
  Receive Date: 20060726
  Receipt Date: 20060522
  Transmission Date: 20061208
  Serious: Yes (Other)
  Sender: FDA-Public Use
  Company Number: FR-BRISTOL-MYERS SQUIBB COMPANY-13386032

PATIENT
  Age: 51 Year
  Sex: Female
  Weight: 54 kg

DRUGS (3)
  1. SUSTIVA [Suspect]
     Indication: HIV INFECTION
     Route: 048
     Dates: start: 20051117
  2. VIREAD [Suspect]
     Indication: HIV INFECTION
     Dates: start: 20051117
  3. EMTRIVA [Concomitant]
     Indication: HIV INFECTION
     Dates: start: 20051117

REACTIONS (1)
  - OSTEONECROSIS [None]
